FAERS Safety Report 10648373 (Version 1)
Quarter: 2014Q4

REPORT INFORMATION
  Report Type: Spontaneous
  Country: US (occurrence: None)
  Receive Date: 20141203
  Receipt Date: 20141203
  Transmission Date: 20150529
  Serious: Yes (Other)
  Sender: FDA-Public Use
  Company Number: 1453053

PATIENT
  Age: 61 Year
  Sex: Female

DRUGS (1)
  1. HERCEPTIN [Suspect]
     Active Substance: TRASTUZUMAB
     Indication: HER-2 POSITIVE BREAST CANCER
     Dosage: 1 IN 3 WK
     Dates: start: 201307

REACTIONS (6)
  - Glaucoma [None]
  - Dyspnoea [None]
  - Chest discomfort [None]
  - Optic nerve disorder [None]
  - Ejection fraction decreased [None]
  - Diastolic dysfunction [None]

NARRATIVE: CASE EVENT DATE: 201311
